FAERS Safety Report 7138543-2 (Version None)
Quarter: 2010Q4

REPORT INFORMATION
  Report Type: 
  Country: None (occurrence: None)
  Receive Date: 20101206
  Receipt Date: 20101129
  Transmission Date: 20110411
  Serious: Yes (Death, Hospitalization, Other)
  Sender: FDA-Public Use
  Company Number: US-ELI_LILLY_AND_COMPANY-US201008004591

PATIENT
  Age: 73 Year
  Sex: Female
  Weight: 81.8 kg

DRUGS (2)
  1. XIGRIS [Suspect]
     Indication: SEPSIS
     Dosage: 24 UG/KG, EVERY HOUR
     Route: 042
     Dates: start: 20100816
  2. HEPARIN [Concomitant]

REACTIONS (5)
  - DEEP VEIN THROMBOSIS [None]
  - MULTI-ORGAN FAILURE [None]
  - PULMONARY EMBOLISM [None]
  - SEPSIS [None]
  - SEPTIC SHOCK [None]
